FAERS Safety Report 9241620 (Version 2)
Quarter: 2013Q2

REPORT INFORMATION
  Report Type: Report from Study
  Country: CO (occurrence: CO)
  Receive Date: 20130419
  Receipt Date: 20130521
  Transmission Date: 20140414
  Serious: Yes (Other)
  Sender: FDA-Public Use
  Company Number: PHHY2013CO024599

PATIENT
  Age: 82 Year
  Sex: Female

DRUGS (3)
  1. EXELON PATCH [Suspect]
     Indication: DEMENTIA ALZHEIMER^S TYPE
     Dosage: 9MG (PATCH 5)
     Route: 062
     Dates: start: 201201, end: 201301
  2. EXELON PATCH [Suspect]
     Dosage: 18MG (PATCH 10)
     Route: 062
     Dates: start: 201301, end: 201301
  3. EXELON PATCH [Suspect]
     Dosage: 9MG (PATCH 5)
     Route: 062
     Dates: start: 201301

REACTIONS (4)
  - Parkinson^s disease [Unknown]
  - Blood pressure increased [Recovered/Resolved]
  - Tremor [Recovered/Resolved]
  - Depression [Recovered/Resolved]
